FAERS Safety Report 5713087-0 (Version None)
Quarter: 2008Q2

REPORT INFORMATION
  Report Type: 
  Country: None (occurrence: None)
  Receive Date: 20080422
  Receipt Date: 20080414
  Transmission Date: 20081010
  Serious: Yes (Death, Hospitalization)
  Sender: FDA-Public Use
  Company Number: IT-ABBOTT-06P-083-0322842-00

PATIENT
  Sex: Male

DRUGS (6)
  1. HUMIRA [Suspect]
     Indication: RHEUMATOID ARTHRITIS
     Route: 058
     Dates: start: 20050505, end: 20051229
  2. PREDNISONE [Concomitant]
     Indication: RHEUMATOID ARTHRITIS
     Dates: start: 20051005
  3. PREDNISONE [Concomitant]
     Dates: start: 20050312, end: 20051004
  4. NIMESULIDE [Concomitant]
     Indication: RHEUMATOID ARTHRITIS
     Dates: start: 20040521
  5. CLODY [Concomitant]
     Indication: OSTEOPOROSIS
     Dates: start: 20031009
  6. EUROCAL D3 [Concomitant]
     Indication: OSTEOPOROSIS
     Dates: start: 20050114

REACTIONS (2)
  - ACUTE RESPIRATORY FAILURE [None]
  - PNEUMOTHORAX [None]
